FAERS Safety Report 7361917-1 (Version None)
Quarter: 2011Q1

REPORT INFORMATION
  Report Type: 
  Country: None (occurrence: None)
  Receive Date: 20110318
  Receipt Date: 20110315
  Transmission Date: 20110831
  Serious: Yes (Other)
  Sender: FDA-Public Use
  Company Number: DE-BRISTOL-MYERS SQUIBB COMPANY-15611023

PATIENT
  Sex: Male
  Weight: 110 kg

DRUGS (11)
  1. ABILIFY [Suspect]
     Dosage: 1 DF:5 TABS TOTAL 50MG
  2. AMLODIPINE [Suspect]
     Dosage: 1 DF:5 TABS
  3. TAMOXIFEN [Suspect]
     Dosage: 1 DF:5 TABS 20 IN TOTAL 100MG
  4. SEROQUEL [Suspect]
     Dosage: 1 DF:10 TABS,IN TOTAL 3000MG FORMULATION:SEROQUEL 300MG
  5. ANAFRANIL [Suspect]
     Dosage: 1 DF:10 TABS ANAFRIL 75 RETARD IN TOTAL 750MG
  6. CIPRAMIL [Suspect]
     Dosage: 1 DF:10 TABS IN TOTAL 200MG
  7. HALDOL [Suspect]
     Dosage: 1 DF:5 TABS  IN TOTAL 25MG
  8. ASPIRIN [Suspect]
     Dosage: 1 DF:5 TABS 100 IN TOTAL 500MG
  9. TORASEMIDE [Suspect]
     Dosage: 1 DF:5 TABS 10MG IN TOTAL 75MG
  10. TARDYFERON [Suspect]
     Dosage: 1 DF:5 TABS 80 IN TOTAL 400MG
  11. MIRTAZAPINE [Suspect]
     Dosage: 1 DF:5 TABS IN TOTAL 150MG

REACTIONS (4)
  - DIZZINESS [None]
  - HYPOTENSION [None]
  - MULTIPLE DRUG OVERDOSE [None]
  - SUICIDE ATTEMPT [None]
